FAERS Safety Report 8801953 (Version 1)
Quarter: 2012Q4

REPORT INFORMATION
  Report Type: 
  Country: CN (occurrence: CN)
  Receive Date: 20120921
  Receipt Date: 20120921
  Transmission Date: 20130627
  Serious: Yes (Hospitalization)
  Sender: FDA-Public Use
  Company Number: CN-PFIZER INC-2012232796

PATIENT
  Age: 46 Year
  Sex: Female

DRUGS (1)
  1. SIROLIMUS [Suspect]
     Indication: LIVER TRANSPLANT
     Dosage: 1 mg, 1x/day
     Route: 048
     Dates: start: 20070203, end: 20100226

REACTIONS (5)
  - Off label use [Unknown]
  - Indifference [Recovering/Resolving]
  - Unresponsive to stimuli [Recovering/Resolving]
  - Hypoaesthesia [Recovering/Resolving]
  - Dyspnoea [Recovering/Resolving]
